FAERS Safety Report 25652785 (Version 1)
Quarter: 2025Q3

REPORT INFORMATION
  Report Type: Spontaneous
  Country: EU (occurrence: EU)
  Receive Date: 20250807
  Receipt Date: 20250807
  Transmission Date: 20251020
  Serious: Yes (Other)
  Sender: TEVA
  Company Number: None

PATIENT
  Age: 43 Year
  Sex: Female

DRUGS (7)
  1. CLOZAPINE [Interacting]
     Active Substance: CLOZAPINE
     Indication: Psychotic disorder
     Route: 048
     Dates: start: 202504
  2. TROPATEPINE HYDROCHLORIDE [Concomitant]
     Active Substance: TROPATEPINE HYDROCHLORIDE
     Indication: Product used for unknown indication
     Route: 065
  3. LEVOMEPROMAZINE [Interacting]
     Active Substance: LEVOMEPROMAZINE
     Indication: Psychotic disorder
     Route: 048
     Dates: start: 2025, end: 20250708
  4. TERALITHE [Interacting]
     Active Substance: LITHIUM CARBONATE
     Indication: Psychotic disorder
     Dosage: TERALITHE LP PROLONGED-RELEASE SCORED TABLET
     Route: 048
  5. FLUPENTIXOL [Interacting]
     Active Substance: FLUPENTIXOL
     Indication: Psychotic disorder
     Route: 065
     Dates: end: 20250708
  6. DIAZEPAM [Interacting]
     Active Substance: DIAZEPAM
     Indication: Anxiety
     Route: 048
  7. VALPROATE SODIUM [Interacting]
     Active Substance: VALPROATE SODIUM
     Indication: Product used for unknown indication
     Route: 048

REACTIONS (4)
  - Sedation [Not Recovered/Not Resolved]
  - Dysphemia [Not Recovered/Not Resolved]
  - Drug interaction [Not Recovered/Not Resolved]
  - Anxiety [Not Recovered/Not Resolved]
